FAERS Safety Report 4551538-8 (Version None)
Quarter: 2005Q1

REPORT INFORMATION
  Report Type: 
  Country: None (occurrence: None)
  Receive Date: 20050111
  Receipt Date: 20041230
  Transmission Date: 20050727
  Serious: Yes (Other)
  Sender: FDA-Public Use
  Company Number: 9567

PATIENT
  Age: 14 Year
  Sex: Male

DRUGS (4)
  1. METHOTREXATE [Suspect]
     Indication: ACUTE LYMPHOCYTIC LEUKAEMIA
  2. DEXAMETHASONE [Concomitant]
  3. VINCRISTINE [Concomitant]
  4. ASPARGINASE [Concomitant]

REACTIONS (5)
  - APHASIA [None]
  - FACIAL PALSY [None]
  - NEUROTOXICITY [None]
  - POST PROCEDURAL COMPLICATION [None]
  - QUADRIPARESIS [None]
